FAERS Safety Report 14498466 (Version 2)
Quarter: 2018Q1

REPORT INFORMATION
  Report Type: Spontaneous
  Country: US (occurrence: US)
  Receive Date: 20180207
  Receipt Date: 20180322
  Transmission Date: 20180509
  Serious: No
  Sender: FDA-Public Use
  Company Number: US-ASTRAZENECA-2018SE15337

PATIENT
  Age: 48 Year
  Sex: Male
  Weight: 107.5 kg

DRUGS (2)
  1. BYDUREON [Suspect]
     Active Substance: EXENATIDE
     Indication: GLYCOSYLATED HAEMOGLOBIN INCREASED
     Route: 058
     Dates: start: 201710
  2. BYDUREON BCISE [Concomitant]
     Active Substance: EXENATIDE
     Route: 058

REACTIONS (6)
  - Injection site haemorrhage [Unknown]
  - Device leakage [Unknown]
  - Accidental exposure to product [Unknown]
  - Injection site extravasation [Unknown]
  - Injection site mass [Not Recovered/Not Resolved]
  - Drug administration error [Unknown]

NARRATIVE: CASE EVENT DATE: 2017
